APPROVED DRUG PRODUCT: DILTIAZEM HYDROCHLORIDE
Active Ingredient: DILTIAZEM HYDROCHLORIDE
Strength: 180MG
Dosage Form/Route: CAPSULE, EXTENDED RELEASE;ORAL
Application: A074943 | Product #002 | TE Code: AB2
Applicant: APOTEX INC
Approved: Dec 19, 2000 | RLD: No | RS: No | Type: RX